FAERS Safety Report 7158983-5 (Version None)
Quarter: 2010Q4

REPORT INFORMATION
  Report Type: 
  Country: None (occurrence: None)
  Receive Date: 20101126
  Receipt Date: 20101108
  Transmission Date: 20110411
  Serious: Yes (Hospitalization)
  Sender: FDA-Public Use
  Company Number: 2010PROUSA00093

PATIENT
  Age: 74 Year
  Sex: Male

DRUGS (4)
  1. PROVENGE [Suspect]
     Indication: PROSTATE CANCER METASTATIC
     Dosage: 250 ML, SINGLE, INTRAVENOUS
     Route: 042
     Dates: start: 20101014, end: 20101014
  2. LUPRON [Concomitant]
  3. ZOMETA [Concomitant]
  4. MEGACE [Concomitant]

REACTIONS (6)
  - BACTERIAL TEST POSITIVE [None]
  - BLOOD CREATINE PHOSPHOKINASE INCREASED [None]
  - CULTURE URINE POSITIVE [None]
  - HAEMATOCRIT DECREASED [None]
  - HAEMATURIA [None]
  - RENAL FAILURE [None]
